FAERS Safety Report 23742249 (Version 1)
Quarter: 2024Q2

REPORT INFORMATION
  Report Type: Spontaneous
  Country: RU (occurrence: None)
  Receive Date: 20240415
  Receipt Date: 20240415
  Transmission Date: 20240716
  Serious: Yes (Other)
  Sender: FDA-Public Use
  Company Number: RU-ROCHE-3541863

PATIENT
  Age: 68 Year
  Sex: Male
  Weight: 60 kg

DRUGS (1)
  1. ATEZOLIZUMAB [Suspect]
     Active Substance: ATEZOLIZUMAB
     Indication: Bladder cancer
     Dosage: A TOTAL OF 12 ADMINISTRATIONS WERE PERFORMED, THE LAST ONE WAS ADMINISTERED IN MAR/2024
     Route: 041
     Dates: start: 202303

REACTIONS (2)
  - Chronic kidney disease [Unknown]
  - Glomerular filtration rate decreased [Unknown]
